FAERS Safety Report 4558118-9 (Version None)
Quarter: 2005Q1

REPORT INFORMATION
  Report Type: 
  Country: None (occurrence: None)
  Receive Date: 20050103
  Receipt Date: 20040920
  Transmission Date: 20050727
  Serious: Yes (Other)
  Sender: FDA-Public Use
  Company Number: 2004UW19579

PATIENT
  Age: 73 Year
  Sex: Male
  Weight: 104.3273 kg

DRUGS (8)
  1. CRESTOR [Suspect]
     Indication: BLOOD CHOLESTEROL INCREASED
     Dosage: 10 MG PO
     Route: 048
  2. WARFARIN SODIUM [Concomitant]
  3. AMBIEN [Concomitant]
  4. LISINOPRIL [Concomitant]
  5. CELEXA [Concomitant]
  6. ASPIRIN [Concomitant]
  7. TRAMADOL HCL [Concomitant]
  8. TYLENOL [Concomitant]

REACTIONS (1)
  - CHROMATURIA [None]
